FAERS Safety Report 7280265-1 (Version None)
Quarter: 2011Q1

REPORT INFORMATION
  Report Type: 
  Country: None (occurrence: None)
  Receive Date: 20110208
  Receipt Date: 20101117
  Transmission Date: 20110831
  Serious: Yes (Hospitalization)
  Sender: FDA-Public Use
  Company Number: BR-BAYER-200924817LA

PATIENT
  Sex: Female

DRUGS (3)
  1. BETAFERON [Suspect]
     Dosage: 8 MIU, QOD
     Route: 058
  2. BETAFERON [Suspect]
     Indication: MULTIPLE SCLEROSIS
     Route: 058
  3. BETAFERON [Suspect]
     Indication: SINUSITIS
     Route: 058
     Dates: start: 20091118

REACTIONS (7)
  - INJECTION SITE ERYTHEMA [None]
  - SINUSITIS [None]
  - INJECTION SITE PRURITUS [None]
  - PYREXIA [None]
  - URINARY TRACT INFECTION [None]
  - MULTIPLE SCLEROSIS RELAPSE [None]
  - INJECTION SITE SWELLING [None]
